FAERS Safety Report 7470269-8 (Version None)
Quarter: 2011Q2

REPORT INFORMATION
  Report Type: 
  Country: None (occurrence: None)
  Receive Date: 20110510
  Receipt Date: 20110426
  Transmission Date: 20111010
  Serious: Yes (Hospitalization)
  Sender: FDA-Public Use
  Company Number: US-JNJFOC-20110411724

PATIENT
  Sex: Female
  Weight: 59.7 kg

DRUGS (11)
  1. PHENAZOPYRIDINE HCL TAB [Concomitant]
     Route: 065
  2. VITAMIN D [Concomitant]
     Dosage: DOSE:50,000 UNITS EVERY MONTH
     Route: 065
  3. FOLIC ACID [Concomitant]
     Dosage: DOSE:400MCG
  4. MOBIC [Concomitant]
     Route: 065
  5. METHOTREXATE [Concomitant]
     Indication: PSORIASIS
     Route: 065
  6. LISINOPRIL [Concomitant]
     Route: 065
  7. WELCHOL [Concomitant]
     Dosage: 625
     Route: 065
  8. VITAMIN D [Concomitant]
     Dosage: DOSE:400 UNITS
     Route: 065
  9. REMICADE [Suspect]
     Indication: PSORIASIS
     Route: 042
  10. CIPROFLOXACIN [Concomitant]
     Route: 065
  11. SIMVASTATIN [Concomitant]
     Route: 065

REACTIONS (4)
  - DIVERTICULITIS [None]
  - PANCYTOPENIA [None]
  - DEHYDRATION [None]
  - RENAL FAILURE ACUTE [None]
